FAERS Safety Report 24150672 (Version 1)
Quarter: 2024Q3

REPORT INFORMATION
  Report Type: Spontaneous
  Country: GB (occurrence: GB)
  Receive Date: 20240730
  Receipt Date: 20240730
  Transmission Date: 20241017
  Serious: Yes (Disabling, Other)
  Sender: GLAXOSMITHKLINE
  Company Number: GB-MHRA-TPP41193513C6637291YC1721839881410

PATIENT

DRUGS (3)
  1. TRELEGY ELLIPTA [Suspect]
     Active Substance: FLUTICASONE FUROATE\UMECLIDINIUM BROMIDE\VILANTEROL TRIFENATATE
     Indication: Product used for unknown indication
     Dosage: 169 ?G, QD (92MCG/55MCG/22MCG)
     Route: 055
     Dates: start: 20240516, end: 20240523
  2. VENTOLIN [Concomitant]
     Active Substance: ALBUTEROL SULFATE
     Indication: Product used for unknown indication
     Dosage: INHALE ONE DOSE UP TO FOUR TIMES A DAY AS NECESSARY
     Route: 055
     Dates: start: 20240611, end: 20240626
  3. SERETIDE [Concomitant]
     Active Substance: FLUTICASONE PROPIONATE\SALMETEROL XINAFOATE
     Indication: Product used for unknown indication
     Dosage: 1 DF, BID
     Route: 055
     Dates: start: 20240611

REACTIONS (2)
  - Arthralgia [Recovered/Resolved]
  - Paraesthesia [Recovered/Resolved]

NARRATIVE: CASE EVENT DATE: 20240516
